FAERS Safety Report 6001658-6 (Version None)
Quarter: 2008Q4

REPORT INFORMATION
  Report Type: 
  Country: None (occurrence: None)
  Receive Date: 20081215
  Receipt Date: 20081209
  Transmission Date: 20090506
  Serious: Yes (Hospitalization)
  Sender: FDA-Public Use
  Company Number: US-B.I. PHARMACEUTICALS,INC./RIDGEFIELD-2008-BP-17167BP

PATIENT
  Age: 89 Year
  Sex: Female
  Weight: 69 kg

DRUGS (6)
  1. MIRAPEX [Suspect]
     Indication: RESTLESS LEGS SYNDROME
     Dates: end: 20081101
  2. NORVASC [Concomitant]
     Dosage: 10MG
     Route: 048
  3. TOPROL-XL [Concomitant]
     Dosage: 25MG
     Route: 048
  4. LISINOPRIL [Concomitant]
     Dosage: 20MG
     Route: 048
  5. ZANTAC [Concomitant]
     Dosage: 300MG
     Route: 048
  6. XANAX [Concomitant]
     Dosage: .25MG

REACTIONS (1)
  - CONFUSIONAL STATE [None]
